FAERS Safety Report 8183269-X (Version None)
Quarter: 2012Q1

REPORT INFORMATION
  Report Type: 
  Country: None (occurrence: None)
  Receive Date: 20120201
  Receipt Date: 20110317
  Transmission Date: 20120608
  Serious: Yes (Hospitalization, Disabling, Other)
  Sender: FDA-Public Use
  Company Number: 272337USA

PATIENT
  Sex: Female

DRUGS (1)
  1. PROPOXYPHENE NAPSYLATE W/ACETAMINOPHENE 100MG/ 650MG, TABLETS (PROPOXY [Suspect]
     Indication: PAIN MANAGEMENT

REACTIONS (4)
  - MYOCARDIAL INFARCTION [None]
  - CARDIOVASCULAR DISORDER [None]
  - ARRHYTHMIA [None]
  - MULTIPLE INJURIES [None]
